FAERS Safety Report 16550822 (Version 1)
Quarter: 2019Q3

REPORT INFORMATION
  Report Type: Spontaneous
  Country: US (occurrence: US)
  Receive Date: 20190709
  Receipt Date: 20190709
  Transmission Date: 20191004
  Serious: Yes (Other)
  Sender: FDA-Public Use
  Company Number: None

PATIENT
  Age: 38 Year
  Sex: Female

DRUGS (4)
  1. ATORVASTATIN TAB 80 MG [Concomitant]
  2. COSENTYX [Suspect]
     Active Substance: SECUKINUMAB
     Indication: PSORIASIS
     Dosage: ?          OTHER FREQUENCY:MONTHLY;?
     Route: 058
     Dates: start: 20180508
  3. GLYCOPYROL TAB 1 MG [Concomitant]
  4. VYVANSE CAP 70 MG [Concomitant]

REACTIONS (1)
  - Psoriasis [None]
